FAERS Safety Report 4836916-1 (Version None)
Quarter: 2005Q4

REPORT INFORMATION
  Report Type: 
  Country: None (occurrence: None)
  Receive Date: 20051123
  Receipt Date: 20051004
  Transmission Date: 20060501
  Serious: Yes (Hospitalization)
  Sender: FDA-Public Use
  Company Number: US-MERCK-0510USA03117

PATIENT
  Age: 70 Year
  Sex: Female
  Weight: 76 kg

DRUGS (13)
  1. VIOXX [Suspect]
     Indication: ARTHRITIS
     Route: 048
     Dates: start: 20011210, end: 20040902
  2. ATENOLOL [Concomitant]
     Route: 048
  3. LASIX [Concomitant]
     Route: 048
  4. TYLENOL W/ CODEINE NO. 3 [Concomitant]
     Route: 048
  5. NITROGLYCERIN [Concomitant]
     Route: 061
  6. LIPITOR [Concomitant]
     Route: 048
  7. AMBIEN [Concomitant]
     Route: 065
  8. XANAX [Concomitant]
     Route: 065
  9. ZOLOFT [Concomitant]
     Route: 048
  10. ZESTRIL [Concomitant]
     Route: 048
  11. TRAZODONE HYDROCHLORIDE [Concomitant]
     Route: 048
  12. CELEBREX [Concomitant]
     Route: 048
  13. K-DUR 10 [Concomitant]
     Route: 048

REACTIONS (11)
  - ANAEMIA [None]
  - ANGINA UNSTABLE [None]
  - ATRIAL FIBRILLATION [None]
  - ATRIAL THROMBOSIS [None]
  - CARDIAC FAILURE CONGESTIVE [None]
  - CORONARY ARTERY DISEASE [None]
  - ISCHAEMIC CARDIOMYOPATHY [None]
  - MUSCULOSKELETAL DISCOMFORT [None]
  - MYOCARDIAL INFARCTION [None]
  - MYOCARDIAL ISCHAEMIA [None]
  - VENTRICULAR DYSFUNCTION [None]
